FAERS Safety Report 10655579 (Version 1)
Quarter: 2014Q4

REPORT INFORMATION
  Report Type: Spontaneous
  Country: US (occurrence: None)
  Receive Date: 20141215
  Receipt Date: 20141215
  Transmission Date: 20150529
  Serious: No
  Sender: FDA-Public Use
  Company Number: None

PATIENT
  Age: 73 Year
  Sex: Female
  Weight: 70.31 kg

DRUGS (8)
  1. QVAR INHALER [Concomitant]
  2. METROPOLOL [Concomitant]
     Active Substance: METOPROLOL
  3. LORAZAPAM [Concomitant]
     Active Substance: LORAZEPAM
  4. CALCIUM [Concomitant]
     Active Substance: CALCIUM
  5. CITALOPRAM [Suspect]
     Active Substance: CITALOPRAM HYDROBROMIDE
     Indication: DEPRESSION
     Dosage: 40 MG  1 TAB DAILY AT BEDTIME
     Dates: start: 20140917
  6. VITAMIN D [Concomitant]
     Active Substance: CHOLECALCIFEROL
  7. VIT B [Concomitant]
     Active Substance: VITAMINS
  8. AZATHIOPRINE. [Concomitant]
     Active Substance: AZATHIOPRINE

REACTIONS (1)
  - Eye pain [None]

NARRATIVE: CASE EVENT DATE: 20140918
